FAERS Safety Report 8522809-5 (Version None)
Quarter: 2012Q3

REPORT INFORMATION
  Report Type: 
  Country: None (occurrence: None)
  Receive Date: 20120720
  Receipt Date: 20120717
  Transmission Date: 20120928
  Serious: Yes (Other)
  Sender: FDA-Public Use
  Company Number: US-AMGEN-USASP2012044441

PATIENT
  Sex: Female

DRUGS (1)
  1. XGEVA [Suspect]
     Indication: PRODUCT USED FOR UNKNOWN INDICATION
     Dosage: 120 MG, UNK
     Dates: start: 20120601

REACTIONS (6)
  - DEPRESSION [None]
  - BLADDER CANCER [None]
  - BEDRIDDEN [None]
  - METASTASES TO BONE [None]
  - ACUTE PHASE REACTION [None]
  - INFLUENZA LIKE ILLNESS [None]
